FAERS Safety Report 16765392 (Version 2)
Quarter: 2019Q4

REPORT INFORMATION
  Report Type: Spontaneous
  Country: DE (occurrence: DE)
  Receive Date: 20190903
  Receipt Date: 20191211
  Transmission Date: 20200122
  Serious: No
  Sender: FDA-Public Use
  Company Number: DE-HORMOSAN PHARMA GMBH-2019-05332

PATIENT
  Sex: Female

DRUGS (2)
  1. MAGNESIUM [Concomitant]
     Active Substance: MAGNESIUM
     Indication: PRODUCT USED FOR UNKNOWN INDICATION
     Dosage: UNK
     Route: 065
  2. QUETIAPIN-HORMOSAN 400 MG RETARDTABLETTEN [Suspect]
     Active Substance: QUETIAPINE FUMARATE
     Indication: DEPRESSION
     Dosage: 400 MILLIGRAM, TID (3 DOSAGE FORM, 1 TABLET IN THE EVENING AND 2 DURING DAY TIME)
     Route: 065

REACTIONS (5)
  - Product substitution issue [Unknown]
  - Insomnia [Unknown]
  - Overdose [Unknown]
  - Restless legs syndrome [Unknown]
  - Anaemia [Unknown]
